FAERS Safety Report 13991444 (Version 1)
Quarter: 2017Q3

REPORT INFORMATION
  Report Type: Spontaneous
  Country: US (occurrence: US)
  Receive Date: 20170920
  Receipt Date: 20170920
  Transmission Date: 20171128
  Serious: No
  Sender: FDA-Public Use
  Company Number: US-RECKITT BENCKISER HEALTHCARE INT LIMITED-RB-89763-2016

PATIENT
  Age: 56 Year
  Sex: Male

DRUGS (2)
  1. MUCINEX [Suspect]
     Active Substance: GUAIFENESIN
     Indication: SINUS CONGESTION
     Dosage: 1200 MG, QD (A DAY)
     Route: 065
     Dates: start: 20160722, end: 2016
  2. MUCINEX [Suspect]
     Active Substance: GUAIFENESIN
     Indication: FLUID RETENTION
     Dosage: 600 MG, BID (EVERY 12 HOURS)
     Route: 065
     Dates: start: 2016

REACTIONS (2)
  - Product use in unapproved indication [Not Recovered/Not Resolved]
  - Headache [Not Recovered/Not Resolved]

NARRATIVE: CASE EVENT DATE: 20160722
